FAERS Safety Report 9073482 (Version 1)
Quarter: 2013Q1

REPORT INFORMATION
  Report Type: Report from Study
  Country: US (occurrence: US)
  Receive Date: 20130129
  Receipt Date: 20130129
  Transmission Date: 20140127
  Serious: No
  Sender: FDA-Public Use
  Company Number: US-ABBOTT-12P-163-0913843-00

PATIENT
  Age: 53 Year
  Sex: Female

DRUGS (6)
  1. HUMIRA 40 MG/0.8 ML PEN [Suspect]
     Indication: CROHN^S DISEASE
     Route: 058
     Dates: start: 201203, end: 201203
  2. HUMIRA 40 MG/0.8 ML PEN [Suspect]
     Route: 058
     Dates: start: 20120309
  3. SIMVASTATIN [Concomitant]
     Indication: BLOOD CHOLESTEROL
  4. PROTONIX [Concomitant]
     Indication: GASTROOESOPHAGEAL REFLUX DISEASE
  5. UNISOM [Concomitant]
     Indication: INSOMNIA
     Dosage: OTC PRN AT NIGHT 1/2 TAB
  6. MULTIVITAMIN [Concomitant]
     Indication: VITAMIN SUPPLEMENTATION
     Dosage: ADULT BID

REACTIONS (3)
  - Wrong technique in drug usage process [Unknown]
  - Injection site pain [Unknown]
  - Injection site pain [Recovered/Resolved]
